FAERS Safety Report 22139750 (Version 1)
Quarter: 2023Q1

REPORT INFORMATION
  Report Type: Spontaneous
  Country: ES (occurrence: ES)
  Receive Date: 20230327
  Receipt Date: 20230327
  Transmission Date: 20230418
  Serious: Yes (Hospitalization)
  Sender: FDA-Public Use
  Company Number: ES-AEMPS-538231

PATIENT
  Age: 86 Year
  Sex: Male
  Weight: 55 kg

DRUGS (2)
  1. TRAMADOL [Interacting]
     Active Substance: TRAMADOL
     Indication: Back pain
     Dosage: 1 DOSAGE FORM, 3 TIMES A DAY
     Route: 048
     Dates: start: 20190823, end: 20190828
  2. GLIMEPIRIDE [Interacting]
     Active Substance: GLIMEPIRIDE
     Indication: Hypertension
     Dosage: 1 DOSAGE FORM, ONCE A DAY(1/24H)
     Route: 048
     Dates: start: 20160226, end: 20190829

REACTIONS (2)
  - Hyponatraemia [Recovering/Resolving]
  - Vomiting [Recovered/Resolved]

NARRATIVE: CASE EVENT DATE: 20190827
